FAERS Safety Report 23555398 (Version 1)
Quarter: 2024Q1

REPORT INFORMATION
  Report Type: Spontaneous
  Country: US (occurrence: US)
  Receive Date: 20240222
  Receipt Date: 20240222
  Transmission Date: 20240410
  Serious: No
  Sender: FDA-Public Use
  Company Number: US-PFIZER INC-202400043822

PATIENT
  Age: 76 Year
  Sex: Male

DRUGS (3)
  1. PAXLOVID [Interacting]
     Active Substance: NIRMATRELVIR\RITONAVIR
  2. TAMSULOSIN [Interacting]
     Active Substance: TAMSULOSIN
  3. TADALAFIL [Interacting]
     Active Substance: TADALAFIL

REACTIONS (1)
  - Drug interaction [Unknown]
